FAERS Safety Report 8818549 (Version 3)
Quarter: 2013Q1

REPORT INFORMATION
  Report Type: Spontaneous
  Country: US (occurrence: None)
  Receive Date: 20121002
  Receipt Date: 20130111
  Transmission Date: 20140127
  Serious: Yes (Hospitalization, Other)
  Sender: FDA-Public Use
  Company Number: KAD201209-000440

PATIENT
  Age: 51 Year
  Sex: Male
  Weight: 62.59 kg

DRUGS (8)
  1. RIBAVIRIN [Suspect]
     Indication: HEPATITIS C
     Dosage: 3 TABS AM, 3 TABS PM (STRENGTH: 200 MG)
     Route: 048
     Dates: start: 201204, end: 20120910
  2. PEGASYS [Suspect]
     Indication: HEPATITIS C
     Dates: start: 201204, end: 201210
  3. INCIVEK [Suspect]
     Dates: start: 201204, end: 20120727
  4. NORVASC [Concomitant]
  5. TENORMIN [Concomitant]
  6. XANAX [Concomitant]
  7. AMBIEN CR [Concomitant]
  8. LISINOPRIL [Concomitant]

REACTIONS (4)
  - Anaemia [None]
  - Rash [None]
  - Asthenia [None]
  - Fall [None]
